FAERS Safety Report 11492123 (Version 2)
Quarter: 2016Q3

REPORT INFORMATION
  Report Type: Spontaneous
  Country: JP (occurrence: JP)
  Receive Date: 20150910
  Receipt Date: 20160715
  Transmission Date: 20161109
  Serious: Yes (Other)
  Sender: FDA-Public Use
  Company Number: JP-BRISTOL-MYERS SQUIBB COMPANY-BMS-2015-050657

PATIENT
  Age: 69 Year
  Sex: Male

DRUGS (2)
  1. ASUNAPREVIR [Suspect]
     Active Substance: ASUNAPREVIR
     Indication: HEPATITIS C VIRUS TEST
     Dosage: 100 MG, BID
     Route: 065
  2. DACLATASVIR DIHYDROCHLORIDE [Suspect]
     Active Substance: DACLATASVIR DIHYDROCHLORIDE
     Indication: HEPATITIS C VIRUS TEST
     Dosage: 60 MG, QD
     Route: 065

REACTIONS (1)
  - Hepatitis B [Unknown]
